FAERS Safety Report 9352991 (Version 1)
Quarter: 2013Q2

REPORT INFORMATION
  Report Type: Spontaneous
  Country: BE (occurrence: BE)
  Receive Date: 20130618
  Receipt Date: 20130618
  Transmission Date: 20140414
  Serious: Yes (Hospitalization)
  Sender: FDA-Public Use
  Company Number: PHHY2013BE060607

PATIENT
  Age: 70 Year
  Sex: Female

DRUGS (1)
  1. ACLASTA [Suspect]
     Dosage: 5 MG, UNK
     Route: 042
     Dates: start: 2013

REACTIONS (7)
  - Bursitis [Recovered/Resolved]
  - Inflammation [Recovered/Resolved]
  - Abasia [Unknown]
  - Arthralgia [Unknown]
  - Osteitis [Unknown]
  - Arthritis [Recovered/Resolved]
  - Pyrexia [Unknown]
